FAERS Safety Report 5448441-8 (Version None)
Quarter: 2007Q3

REPORT INFORMATION
  Report Type: 
  Country: None (occurrence: None)
  Receive Date: 20070905
  Receipt Date: 20070821
  Transmission Date: 20080115
  Serious: Yes (Hospitalization)
  Sender: FDA-Public Use
  Company Number: SPI200700585

PATIENT
  Age: 64 Year
  Sex: Female
  Weight: 70.7 kg

DRUGS (10)
  1. AMITIZA [Suspect]
     Indication: CONSTIPATION
     Dosage: 24 MCG, BID, ORAL
     Route: 048
     Dates: start: 20070811, end: 20070816
  2. CARTIA XT [Concomitant]
  3. LISINOPRIL W/HYDROCHLOROTHIAZIDE LISINOPRIL) [Concomitant]
  4. ZOCOR [Concomitant]
  5. ESTROGENS SOL/INJ [Concomitant]
  6. REQUIP [Concomitant]
  7. ASPIRIN [Concomitant]
  8. ULTRAM [Concomitant]
  9. MIRALAX (MACROLGOL) [Concomitant]
  10. MAGNESIUM CITRATE (MAGNESIUM CITRATE) [Concomitant]

REACTIONS (2)
  - ANOREXIA [None]
  - COLITIS ISCHAEMIC [None]
